FAERS Safety Report 7423561-7 (Version None)
Quarter: 2011Q2

REPORT INFORMATION
  Report Type: 
  Country: None (occurrence: None)
  Receive Date: 20110419
  Receipt Date: 20110405
  Transmission Date: 20111010
  Serious: Yes (Other)
  Sender: FDA-Public Use
  Company Number: US-ENDO PHARMACEUTICALS INC.-OPIR20110013

PATIENT
  Sex: Male
  Weight: 95.794 kg

DRUGS (1)
  1. OPANA [Suspect]
     Indication: ARTHRALGIA
     Route: 048
     Dates: start: 20110201

REACTIONS (2)
  - DRUG SCREEN NEGATIVE [None]
  - INAPPROPRIATE SCHEDULE OF DRUG ADMINISTRATION [None]
